FAERS Safety Report 7677007-4 (Version None)
Quarter: 2011Q3

REPORT INFORMATION
  Report Type: 
  Country: None (occurrence: None)
  Receive Date: 20110810
  Receipt Date: 20110810
  Transmission Date: 20111222
  Serious: Yes (Hospitalization)
  Sender: FDA-Public Use
  Company Number: None

PATIENT
  Sex: Female
  Weight: 25.2 kg

DRUGS (8)
  1. ZOFRAN [Concomitant]
  2. CEFIXIME [Concomitant]
  3. IRINOTECAN HCL [Suspect]
     Indication: NEUROBLASTOMA
     Dosage: 44 MG 5X EVERY 21 DAYS IV
     Route: 042
     Dates: start: 20110718
  4. VELCADE [Suspect]
     Indication: NEUROBLASTOMA
     Dosage: 1.2 MG 4X EVERY 21 DAYS IV
     Route: 042
     Dates: start: 20110718
  5. CEFPODOXIME PROXETIL [Concomitant]
  6. BACTRIM [Concomitant]
  7. MIRALAX [Concomitant]
  8. PREVACID [Concomitant]

REACTIONS (10)
  - CHILLS [None]
  - COUGH [None]
  - NEUTROPHIL COUNT DECREASED [None]
  - WHITE BLOOD CELLS URINE POSITIVE [None]
  - VOMITING [None]
  - PSEUDOMONAS TEST POSITIVE [None]
  - DEVICE RELATED INFECTION [None]
  - URINARY SEDIMENT PRESENT [None]
  - STAPHYLOCOCCUS TEST POSITIVE [None]
  - PYREXIA [None]
